FAERS Safety Report 4870592-7 (Version None)
Quarter: 2006Q1

REPORT INFORMATION
  Report Type: 
  Country: None (occurrence: None)
  Receive Date: 20060103
  Receipt Date: 20051213
  Transmission Date: 20060701
  Serious: Yes (Hospitalization)
  Sender: FDA-Public Use
  Company Number: JP-BRISTOL-MYERS SQUIBB COMPANY-13214911

PATIENT
  Sex: Female

DRUGS (3)
  1. TAXOL [Suspect]
     Indication: UTERINE CANCER
     Route: 042
     Dates: start: 20051129, end: 20051129
  2. PARAPLATIN [Suspect]
     Indication: UTERINE CANCER
     Route: 042
     Dates: start: 20051129, end: 20051129
  3. MELOXICAM [Concomitant]
     Route: 048
     Dates: start: 20051128, end: 20051202

REACTIONS (8)
  - DIARRHOEA [None]
  - DISSEMINATED INTRAVASCULAR COAGULATION [None]
  - LEUKOPENIA [None]
  - LIVER DISORDER [None]
  - PYREXIA [None]
  - RASH [None]
  - STOMATITIS [None]
  - THROMBOCYTOPENIA [None]
